FAERS Safety Report 11403178 (Version 1)
Quarter: 2015Q3

REPORT INFORMATION
  Report Type: Spontaneous
  Country: US (occurrence: None)
  Receive Date: 20150820
  Receipt Date: 20150820
  Transmission Date: 20151125
  Serious: Yes (Other)
  Sender: FDA-Public Use
  Company Number: None

PATIENT
  Age: 48 Year
  Sex: Male
  Weight: 81.65 kg

DRUGS (2)
  1. TESTOSTERONE 500MG [Suspect]
     Active Substance: TESTOSTERONE
     Indication: BLOOD TESTOSTERONE DECREASED
     Dosage: ONCE EVER 2 WEEKS
     Route: 042
     Dates: start: 2014, end: 20150703
  2. TESTOSTERONE 500MG [Suspect]
     Active Substance: TESTOSTERONE
     Indication: PAIN
     Dosage: ONCE EVER 2 WEEKS
     Route: 042
     Dates: start: 2014, end: 20150703

REACTIONS (2)
  - Rash [None]
  - Alopecia [None]

NARRATIVE: CASE EVENT DATE: 2014
